FAERS Safety Report 7153038-8 (Version None)
Quarter: 2010Q4

REPORT INFORMATION
  Report Type: 
  Country: None (occurrence: None)
  Receive Date: 20101213
  Receipt Date: 20101012
  Transmission Date: 20110411
  Serious: Yes (Death)
  Sender: FDA-Public Use
  Company Number: GB-NOVOPROD-317959

PATIENT

DRUGS (1)
  1. MIXTARD HUMAN 70/30 [Suspect]
     Indication: OFF LABEL USE
     Route: 042

REACTIONS (1)
  - INTENTIONAL DRUG MISUSE [None]
